FAERS Safety Report 16994249 (Version 3)
Quarter: 2020Q2

REPORT INFORMATION
  Report Type: Report from Study
  Country: US (occurrence: US)
  Receive Date: 20191105
  Receipt Date: 20200421
  Transmission Date: 20200713
  Serious: Yes (Hospitalization, Other)
  Sender: FDA-Public Use
  Company Number: NVSC2019US023720

PATIENT
  Age: 70 Year
  Sex: Female

DRUGS (3)
  1. ENTRESTO [Suspect]
     Active Substance: SACUBITRIL\VALSARTAN
     Indication: CARDIAC FAILURE CHRONIC
  2. ENTRESTO [Suspect]
     Active Substance: SACUBITRIL\VALSARTAN
     Indication: CARDIAC FAILURE CONGESTIVE
  3. ENTRESTO [Suspect]
     Active Substance: SACUBITRIL\VALSARTAN
     Dosage: 1 DF (24/26 MG), BID
     Route: 048
     Dates: start: 201812

REACTIONS (14)
  - Pulmonary oedema [Not Recovered/Not Resolved]
  - Fatigue [Unknown]
  - Diabetes mellitus [Unknown]
  - Malaise [Unknown]
  - Fluid retention [Not Recovered/Not Resolved]
  - Limb discomfort [Unknown]
  - Cataract [Not Recovered/Not Resolved]
  - Stress [Unknown]
  - Arthritis [Unknown]
  - Ejection fraction decreased [Unknown]
  - Blood glucose fluctuation [Unknown]
  - Disturbance in attention [Unknown]
  - Atrial fibrillation [Unknown]
  - Blood pressure fluctuation [Unknown]

NARRATIVE: CASE EVENT DATE: 201812
